FAERS Safety Report 6602127-2 (Version None)
Quarter: 2010Q1

REPORT INFORMATION
  Report Type: 
  Country: None (occurrence: None)
  Receive Date: 20100225
  Receipt Date: 20100218
  Transmission Date: 20100710
  Serious: Yes (Hospitalization)
  Sender: FDA-Public Use
  Company Number: PHHO2006ES17395

PATIENT
  Sex: Male
  Weight: 94.5 kg

DRUGS (4)
  1. CERTICAN [Suspect]
     Indication: HEART TRANSPLANT
     Dosage: 1.5 MG DAILY
     Route: 048
     Dates: start: 20060713
  2. CERTICAN [Suspect]
     Dosage: 0.5 MG, Q12H
     Route: 048
     Dates: start: 20060728, end: 20061018
  3. NSAID'S [Concomitant]
  4. CYCLOSPORINE [Concomitant]
     Indication: HEART TRANSPLANT

REACTIONS (7)
  - BLOOD CREATININE INCREASED [None]
  - BLOOD POTASSIUM INCREASED [None]
  - NEPHROPATHY TOXIC [None]
  - OBSTRUCTIVE UROPATHY [None]
  - OLIGURIA [None]
  - RENAL COLIC [None]
  - RENAL FAILURE CHRONIC [None]
